FAERS Safety Report 5495530-8 (Version None)
Quarter: 2007Q4

REPORT INFORMATION
  Report Type: 
  Country: None (occurrence: None)
  Receive Date: 20071018
  Receipt Date: 20061204
  Transmission Date: 20080405
  Serious: Yes (Other)
  Sender: FDA-Public Use
  Company Number: 2005116469

PATIENT
  Age: 22 Year
  Sex: Male
  Weight: 72 kg

DRUGS (6)
  1. NEURONTIN [Suspect]
     Indication: BIPOLAR DISORDER
     Dosage: 600 MG (300 MG, 2 IN 1 D)
     Dates: start: 20030710
  2. NEURONTIN [Suspect]
     Indication: MOOD SWINGS
     Dosage: 600 MG (300 MG, 2 IN 1 D)
     Dates: start: 20030710
  3. LEXAPRO [Concomitant]
  4. KEPPRA [Concomitant]
  5. SEROQUEL [Concomitant]
  6. ALBUTEROL [Concomitant]

REACTIONS (2)
  - DRUG INEFFECTIVE [None]
  - SUICIDE ATTEMPT [None]
